FAERS Safety Report 7644766-6 (Version None)
Quarter: 2011Q3

REPORT INFORMATION
  Report Type: 
  Country: None (occurrence: None)
  Receive Date: 20110729
  Receipt Date: 20110721
  Transmission Date: 20111222
  Serious: Yes (Death, Other)
  Sender: FDA-Public Use
  Company Number: IL-MILLENNIUM PHARMACEUTICALS, INC.-2011-03144

PATIENT

DRUGS (10)
  1. VELCADE [Suspect]
     Indication: MULTIPLE MYELOMA
     Dosage: 2.1 MG, UNK
     Dates: start: 20110516, end: 20110605
  2. DEXAMETHASONE [Suspect]
  3. CIPRAMIL                           /00582601/ [Concomitant]
     Dosage: 10 MG, UNK
  4. LERCANIDIPINE [Concomitant]
     Indication: HYPERTENSION
     Dosage: 10 MG, UNK
  5. FUROSEMIDE [Concomitant]
     Indication: HYPERTENSION
     Dosage: 40 MG, UNK
  6. FAMOTIDINE [Concomitant]
     Indication: DYSPEPSIA
     Dosage: 20 MG, UNK
  7. OSMOLITE [Concomitant]
     Dosage: 480 ML, UNK
  8. CEFORAL                            /00145502/ [Concomitant]
     Dosage: 500 MG, UNK
  9. BONDORMIN [Concomitant]
     Indication: INSOMNIA
     Dosage: 0.5 MG, UNK
  10. DOPICAR [Concomitant]

REACTIONS (2)
  - DEATH [None]
  - HERPES ZOSTER [None]
